FAERS Safety Report 4718977-3 (Version None)
Quarter: 2005Q3

REPORT INFORMATION
  Report Type: 
  Country: None (occurrence: None)
  Receive Date: 20050719
  Receipt Date: 20050704
  Transmission Date: 20060218
  Serious: Yes (Life-Threatening, Hospitalization)
  Sender: FDA-Public Use
  Company Number: MEDI-0003451

PATIENT
  Age: 58 Year
  Sex: Male

DRUGS (5)
  1. ETHYOL [Suspect]
     Indication: RADIOTHERAPY
     Dosage: INTRAVENOUS
     Route: 042
     Dates: end: 20050425
  2. RADIATION THERAPY [Concomitant]
  3. ONDANSETRON HYDROCHLORIDE [Concomitant]
  4. ALLOPURINOL [Concomitant]
  5. TAREG (VALSARTAN) [Concomitant]

REACTIONS (5)
  - HEPATITIS [None]
  - LYMPHOPENIA [None]
  - NORMOCHROMIC NORMOCYTIC ANAEMIA [None]
  - STAPHYLOCOCCAL INFECTION [None]
  - TOXIC EPIDERMAL NECROLYSIS [None]
